FAERS Safety Report 20326898 (Version 10)
Quarter: 2022Q2

REPORT INFORMATION
  Report Type: Report from Study
  Country: GB (occurrence: None)
  Receive Date: 20220112
  Receipt Date: 20220526
  Transmission Date: 20220721
  Serious: Yes (Hospitalization)
  Sender: FDA-Public Use
  Company Number: GB-Eisai Medical Research-EC-2022-106492

PATIENT
  Age: 50 Year
  Sex: Female
  Weight: 50.7 kg

DRUGS (28)
  1. LENVATINIB [Suspect]
     Active Substance: LENVATINIB
     Indication: Squamous cell carcinoma of head and neck
     Dosage: STARTING DOSE AT 20 MG, FLUCTUATED DOSAGE
     Route: 048
     Dates: start: 20211111, end: 20211221
  2. LENVATINIB [Suspect]
     Active Substance: LENVATINIB
     Route: 048
     Dates: start: 20211223, end: 20220104
  3. PEMBROLIZUMAB [Suspect]
     Active Substance: PEMBROLIZUMAB
     Indication: Squamous cell carcinoma of head and neck
     Route: 041
     Dates: start: 20211111, end: 20211202
  4. PEMBROLIZUMAB [Suspect]
     Active Substance: PEMBROLIZUMAB
     Route: 041
     Dates: start: 20211223, end: 20211223
  5. SPATONE [Concomitant]
     Dates: start: 202110
  6. POLYETHYLENE GLYCOL 3350\POTASSIUM CHLORIDE\SODIUM BICARBONATE\SODIUM [Concomitant]
     Active Substance: POLYETHYLENE GLYCOL 3350\POTASSIUM CHLORIDE\SODIUM BICARBONATE\SODIUM CHLORIDE
     Dates: start: 202107
  7. IBUPROFEN [Concomitant]
     Active Substance: IBUPROFEN
     Dates: start: 202107
  8. SENNOSIDES A AND B [Concomitant]
     Active Substance: SENNOSIDES A AND B
     Dates: start: 202107
  9. ACETAMINOPHEN [Concomitant]
     Active Substance: ACETAMINOPHEN
     Dates: start: 202107
  10. AMITRIPTYLINE HYDROCHLORIDE [Concomitant]
     Active Substance: AMITRIPTYLINE HYDROCHLORIDE
     Dates: start: 20210831
  11. MORPHINE SULFATE [Concomitant]
     Active Substance: MORPHINE SULFATE
     Dates: start: 20210901
  12. ORAMORPH SR SUSTAINED RELEASE [Concomitant]
     Active Substance: MORPHINE SULFATE
     Dates: start: 20210901
  13. OMEPRAZOLE [Concomitant]
     Active Substance: OMEPRAZOLE
     Dates: start: 20210914
  14. OXYCODONE HYDROCHLORIDE [Concomitant]
     Active Substance: OXYCODONE HYDROCHLORIDE
     Dates: start: 20211125, end: 20220103
  15. OXYCODONE HYDROCHLORIDE [Concomitant]
     Active Substance: OXYCODONE HYDROCHLORIDE
     Dates: start: 20220103
  16. DOMPERIDONE [Concomitant]
     Active Substance: DOMPERIDONE
     Dates: start: 20210930
  17. BENZYDAMINE HYDROCHLORIDE [Concomitant]
     Active Substance: BENZYDAMINE HYDROCHLORIDE
     Dates: start: 20211005
  18. GELCLAIR [ENOXOLONE;HYALURONATE SODIUM;POVIDONE] [Concomitant]
     Dates: start: 20211008
  19. HYDROCORTISONE ACETATE [Concomitant]
     Active Substance: HYDROCORTISONE ACETATE
     Dates: start: 20211111
  20. ASPIRIN [Concomitant]
     Active Substance: ASPIRIN
     Dates: start: 20211122
  21. PREGABALIN [Concomitant]
     Active Substance: PREGABALIN
     Dates: start: 20211125
  22. OXYCODONE [Concomitant]
     Active Substance: OXYCODONE
     Dates: start: 20211125, end: 20220103
  23. CALCIUM CARBONATE\CHOLECALCIFEROL [Concomitant]
     Active Substance: CALCIUM CARBONATE\CHOLECALCIFEROL
     Dates: start: 20211203
  24. AMITRIPTYLINE [Concomitant]
     Active Substance: AMITRIPTYLINE
     Dates: start: 20211205, end: 20220102
  25. DEXTROSE [Concomitant]
     Active Substance: DEXTROSE
     Dates: start: 20220103
  26. DEXTROSE;POTASSIUM CHLORIDE [Concomitant]
     Dates: start: 20220103, end: 2022
  27. SCHUESSLER SALZE NR. 12 [Concomitant]
     Dates: start: 20210917
  28. ZOMETA [Concomitant]
     Active Substance: ZOLEDRONIC ACID
     Dates: start: 20211223, end: 20220113

REACTIONS (2)
  - Pharyngeal inflammation [Recovered/Resolved]
  - Pyrexia [Recovered/Resolved]

NARRATIVE: CASE EVENT DATE: 20220103
